FAERS Safety Report 9031422 (Version 3)
Quarter: 2022Q4

REPORT INFORMATION
  Report Type: Report from Study
  Country: US (occurrence: None)
  Receive Date: 20130124
  Receipt Date: 20221108
  Transmission Date: 20230113
  Serious: Yes (Hospitalization, Other)
  Sender: FDA-Public Use
  Company Number: US-ROCHE-1036868

PATIENT
  Age: 65 Year
  Sex: Female
  Weight: 60 kg

DRUGS (3)
  1. BEVACIZUMAB [Suspect]
     Active Substance: BEVACIZUMAB
     Indication: Fallopian tube cancer
     Dosage: OVER 30-90 MINS ON DAY 1 OF CYCLE 2+, DATE OF LAST DOSE ADMINISTERED 10/MAR/2011
     Route: 042
     Dates: start: 20110120
  2. PACLITAXEL [Suspect]
     Active Substance: PACLITAXEL
     Indication: Fallopian tube cancer
     Dosage: OVER 1 HOUR ON DAY 1,8 + 15 (CYCLE 1-6), DATE OF LAST DOSE ADMINISTERED 17/MAR/2011
     Route: 042
     Dates: start: 20110120
  3. CARBOPLATIN [Suspect]
     Active Substance: CARBOPLATIN
     Indication: Fallopian tube cancer
     Dosage: DOSE LEVEL : AUG=6 ON DAY 1 (CYCLE 1-6), DATE OF LAST DOSE ADMINISTERED 10/MAR/2011
     Route: 042
     Dates: start: 20110120

REACTIONS (8)
  - Dyspnoea [Recovered/Resolved]
  - Rash maculo-papular [Recovered/Resolved]
  - Fatigue [Unknown]
  - Pain [Unknown]
  - Nausea [Unknown]
  - Vomiting [Unknown]
  - Diarrhoea [Unknown]
  - Anaemia [Recovered/Resolved]

NARRATIVE: CASE EVENT DATE: 20110324
